FAERS Safety Report 21619052 (Version 1)
Quarter: 2022Q4

REPORT INFORMATION
  Report Type: Report from Study
  Country: JP (occurrence: JP)
  Receive Date: 20221120
  Receipt Date: 20221120
  Transmission Date: 20230113
  Serious: Yes (Death, Hospitalization)
  Sender: FDA-Public Use
  Company Number: JP-BAYER-2018-176532

PATIENT
  Age: 68 Year
  Sex: Male

DRUGS (3)
  1. VENTAVIS [Suspect]
     Active Substance: ILOPROST
     Indication: Pulmonary arterial hypertension
     Dosage: 2.5 UG, 6ID
     Route: 055
     Dates: start: 20180315, end: 20180807
  2. SILDENAFIL [Concomitant]
     Active Substance: SILDENAFIL
  3. OXYGEN [Concomitant]
     Active Substance: OXYGEN
     Indication: Pulmonary arterial hypertension
     Dosage: UNK
     Route: 055
     Dates: end: 20181105

REACTIONS (4)
  - Death [Fatal]
  - Pulmonary hypertension [Not Recovered/Not Resolved]
  - Oxygen saturation decreased [Unknown]
  - Therapeutic product effect incomplete [Unknown]

NARRATIVE: CASE EVENT DATE: 20180815
